FAERS Safety Report 5829091-8 (Version None)
Quarter: 2008Q3

REPORT INFORMATION
  Report Type: 
  Country: None (occurrence: None)
  Receive Date: 20080731
  Receipt Date: 20080721
  Transmission Date: 20090109
  Serious: Yes (Other)
  Sender: FDA-Public Use
  Company Number: US-TYCO HEALTHCARE/MALLINCKRODT-T200800995

PATIENT

DRUGS (26)
  1. OPTIMARK [Suspect]
     Indication: NUCLEAR MAGNETIC RESONANCE IMAGING
     Dosage: 20 ML, SINGLE
     Route: 042
     Dates: start: 20060313, end: 20060313
  2. OPTIMARK [Suspect]
     Dosage: 3 ML, SINGLE
     Route: 042
     Dates: start: 20060319, end: 20060319
  3. OPTIMARK [Suspect]
     Dosage: 20 ML, SINGLE
     Route: 042
     Dates: start: 20060325, end: 20060325
  4. OPTIMARK [Suspect]
     Dosage: 20 ML, SINGLE
     Route: 042
     Dates: start: 20070518, end: 20070518
  5. MAGNEVIST [Suspect]
     Indication: SCAN
     Dosage: UNK, SINGLE
     Dates: start: 20060319, end: 20060319
  6. MAGNEVIST [Suspect]
     Dosage: UNK, SINGLE
     Dates: start: 20060325, end: 20060325
  7. ALLEGRA [Concomitant]
     Indication: PRURITUS
     Dosage: 180 MG, QD
  8. EVISTA [Concomitant]
     Indication: OSTEOPOROSIS
     Dosage: 60 MG, QD
  9. PHOSLO [Concomitant]
     Indication: BLOOD PHOSPHORUS
     Dosage: 667 MG, BID/ 2-3 TIMES PER DAY
  10. ISOSORBIDE DINITRATE [Concomitant]
     Indication: ANGINA PECTORIS
     Dosage: 30 MG, QD
  11. NEURONTIN [Concomitant]
     Indication: LIMB DISCOMFORT
     Dosage: 1200 MG, BID
  12. LASIX [Concomitant]
     Indication: FLUID RETENTION
     Dosage: 160 MG, BID
  13. LASIX [Concomitant]
     Indication: HYPERTENSION
  14. LOPRESSOR [Concomitant]
     Indication: HYPERTENSION
     Dosage: 25 MG, BID
  15. SYNTHROID [Concomitant]
     Indication: HYPOTHYROIDISM
     Dosage: .125 MG, QD
  16. SINGULAIR [Concomitant]
     Indication: SINUS DISORDER
     Dosage: 10 MG, QD
  17. DARVOCET-N 100 [Concomitant]
     Indication: PAIN
     Dosage: 100 MG, EVERY SIX HOURS
  18. NOVOLOG MIX 70/30 [Concomitant]
     Indication: DIABETES MELLITUS
     Dosage: 10 IU, QD
  19. LEVEMIR [Concomitant]
     Indication: DIABETES MELLITUS
     Dosage: 10 IU, QD
  20. ADVAIR DISKUS 100/50 [Concomitant]
     Indication: ASTHMA
     Dosage: 250/50 TWO PUFFS PER DAY
  21. TOPSYN [Concomitant]
     Indication: RASH
     Dosage: AS NEEDED
     Route: 061
  22. TOPSYN [Concomitant]
     Indication: PRURITUS
  23. UREA CREAM [Concomitant]
     Indication: DRY SKIN
     Dosage: UNK, QD
  24. HYLIRA [Concomitant]
     Indication: DRY SKIN
     Dosage: UNK, QD
  25. XANAX [Concomitant]
     Indication: ANXIETY
     Dosage: .5 MG, BID
  26. ATARAX [Concomitant]
     Indication: PRURITUS
     Dosage: 25 MG, QD

REACTIONS (1)
  - NEPHROGENIC SYSTEMIC FIBROSIS [None]
